FAERS Safety Report 8447866-6 (Version None)
Quarter: 2012Q2

REPORT INFORMATION
  Report Type: 
  Country: None (occurrence: None)
  Receive Date: 20120612
  Receipt Date: 20120529
  Transmission Date: 20120825
  Serious: Yes (Hospitalization)
  Sender: FDA-Public Use
  Company Number: USA/USA/12/0024560

PATIENT
  Age: 60 Year
  Sex: Male

DRUGS (3)
  1. TACROLIMUS [Suspect]
     Indication: IMMUNOSUPPRESSANT DRUG THERAPY
     Dosage: 1 MG, 2 IN 1 D, UNKNOWN
  2. MYCOPHENOLATE MOFETIL [Concomitant]
  3. PREDNISONE TAB [Concomitant]

REACTIONS (15)
  - ELECTROENCEPHALOGRAM ABNORMAL [None]
  - STARING [None]
  - NEGATIVISM [None]
  - CONFUSIONAL STATE [None]
  - NEUROTOXICITY [None]
  - CATATONIA [None]
  - APHASIA [None]
  - MUTISM [None]
  - RESTLESSNESS [None]
  - MUSCLE RIGIDITY [None]
  - ECHOPRAXIA [None]
  - AGITATION [None]
  - TREMOR [None]
  - ANXIETY [None]
  - TREATMENT FAILURE [None]
